FAERS Safety Report 23734218 (Version 1)
Quarter: 2024Q2

REPORT INFORMATION
  Report Type: Spontaneous
  Country: IT (occurrence: IT)
  Receive Date: 20240412
  Receipt Date: 20240412
  Transmission Date: 20240716
  Serious: Yes (Hospitalization)
  Sender: FDA-Public Use
  Company Number: None

PATIENT
  Age: 76 Year
  Sex: Male
  Weight: 58 kg

DRUGS (2)
  1. ETOPOSIDE [Suspect]
     Active Substance: ETOPOSIDE
     Indication: Colon cancer stage IV
     Route: 042
     Dates: start: 20240119
  2. CARBOPLATIN [Suspect]
     Active Substance: CARBOPLATIN
     Indication: Colon cancer stage IV
     Dosage: CARBOPLATINO
     Route: 042
     Dates: start: 20240119

REACTIONS (1)
  - Leukopenia [Recovering/Resolving]

NARRATIVE: CASE EVENT DATE: 20240202
